FAERS Safety Report 5355626-8 (Version None)
Quarter: 2007Q2

REPORT INFORMATION
  Report Type: 
  Country: None (occurrence: None)
  Receive Date: 20070613
  Receipt Date: 20070612
  Transmission Date: 20071010
  Serious: Yes (Hospitalization)
  Sender: FDA-Public Use
  Company Number: B0474803A

PATIENT
  Age: 60 Year
  Sex: Female
  Weight: 56 kg

DRUGS (2)
  1. MALARONE [Suspect]
     Indication: MALARIA PROPHYLAXIS
     Route: 048
     Dates: start: 20061112, end: 20061119
  2. ATACAND HCT [Concomitant]
     Route: 048

REACTIONS (9)
  - ANGIOEDEMA [None]
  - APHTHOUS STOMATITIS [None]
  - CONJUNCTIVITIS [None]
  - ERYTHEMA MULTIFORME [None]
  - EYE SWELLING [None]
  - RASH GENERALISED [None]
  - RASH MACULAR [None]
  - STEVENS-JOHNSON SYNDROME [None]
  - SWELLING FACE [None]
